FAERS Safety Report 4620961-5 (Version None)
Quarter: 2005Q1

REPORT INFORMATION
  Report Type: 
  Country: None (occurrence: None)
  Receive Date: 20050325
  Receipt Date: 20050314
  Transmission Date: 20050727
  Serious: Yes (Death, Hospitalization)
  Sender: FDA-Public Use
  Company Number: 2001081087US

PATIENT
  Age: 74 Year
  Sex: Male
  Weight: 71 kg

DRUGS (8)
  1. CAMPTOSAR [Suspect]
     Indication: OESOPHAGEAL CARCINOMA
     Dosage: 117 MG (CYCLIC INTERVAL: DAILY), INTRAVENOUS
     Route: 042
     Dates: start: 20011025, end: 20011108
  2. CISPLATIN [Suspect]
     Indication: OESOPHAGEAL CARCINOMA
     Dosage: 54 MG (CYCLIC INTERVAL:  DAILY), INTRAVENOUS
     Route: 042
     Dates: start: 20011025, end: 20011108
  3. LOPERAMIDE [Concomitant]
  4. VERAPAMIL [Concomitant]
  5. METFORMIN HCL [Concomitant]
  6. FUROSEMIDE [Concomitant]
  7. ONDANSETRON HCL [Concomitant]
  8. DEXAMETHASONE [Concomitant]

REACTIONS (13)
  - BLOOD SODIUM DECREASED [None]
  - BLOOD UREA INCREASED [None]
  - DEHYDRATION [None]
  - FEBRILE NEUTROPENIA [None]
  - HAEMATOCRIT DECREASED [None]
  - HAEMOGLOBIN DECREASED [None]
  - LEUKOPENIA [None]
  - METASTASES TO LIVER [None]
  - NAUSEA [None]
  - PLATELET COUNT DECREASED [None]
  - PNEUMONIA ASPIRATION [None]
  - RESPIRATORY DISORDER [None]
  - VOMITING [None]
